FAERS Safety Report 5565305-X (Version None)
Quarter: 2007Q4

REPORT INFORMATION
  Report Type: 
  Country: None (occurrence: None)
  Receive Date: 20071218
  Receipt Date: 20071206
  Transmission Date: 20080405
  Serious: Yes (Hospitalization, Other)
  Sender: FDA-Public Use
  Company Number: DE-PFIZER INC-2007103698

PATIENT
  Sex: Female

DRUGS (1)
  1. DETRUSITOL [Suspect]
     Indication: URGE INCONTINENCE

REACTIONS (3)
  - BREAST CANCER [None]
  - POLYNEUROPATHY [None]
  - URINARY RETENTION [None]
